FAERS Safety Report 5611152-X (Version None)
Quarter: 2008Q1

REPORT INFORMATION
  Report Type: 
  Country: None (occurrence: None)
  Receive Date: 20080201
  Receipt Date: 20080125
  Transmission Date: 20080703
  Serious: Yes (Other)
  Sender: FDA-Public Use
  Company Number: US-PURDUE-USA_2008_0031302

PATIENT
  Sex: Female

DRUGS (1)
  1. DILAUDID - HP INJECTION [Suspect]
     Indication: DRUG USE FOR UNKNOWN INDICATION
     Dosage: 10 MG, Q3H
     Route: 030
     Dates: start: 20010101

REACTIONS (3)
  - BLOOD CREATINE PHOSPHOKINASE INCREASED [None]
  - MUSCLE SWELLING [None]
  - MYOPATHY [None]
